FAERS Safety Report 13041932 (Version 1)
Quarter: 2016Q4

REPORT INFORMATION
  Report Type: Spontaneous
  Country: US (occurrence: US)
  Receive Date: 20161219
  Receipt Date: 20161219
  Transmission Date: 20170207
  Serious: No
  Sender: FDA-Public Use
  Company Number: US-ROCHE-1252978

PATIENT
  Sex: Male

DRUGS (1)
  1. ZELBORAF [Suspect]
     Active Substance: VEMURAFENIB
     Indication: MALIGNANT MELANOMA
     Route: 065
     Dates: start: 20130705, end: 20130719

REACTIONS (4)
  - Rash [Unknown]
  - Eye irritation [Unknown]
  - Eye swelling [Unknown]
  - Abdominal pain [Recovered/Resolved]
